FAERS Safety Report 25892022 (Version 1)
Quarter: 2025Q4

REPORT INFORMATION
  Report Type: Spontaneous
  Country: US (occurrence: US)
  Receive Date: 20251007
  Receipt Date: 20251007
  Transmission Date: 20260117
  Serious: Yes (Other)
  Sender: NOVO NORDISK
  Company Number: US-NOVOPROD-1533277

PATIENT
  Age: 56 Year
  Sex: Female
  Weight: 86.168 kg

DRUGS (15)
  1. WEGOVY [Suspect]
     Active Substance: SEMAGLUTIDE
     Indication: Weight control
     Dosage: 0.25 MG
     Dates: start: 202504
  2. WEGOVY [Suspect]
     Active Substance: SEMAGLUTIDE
     Indication: Glucose tolerance impaired
  3. WEGOVY [Suspect]
     Active Substance: SEMAGLUTIDE
     Indication: Glycosylated haemoglobin increased
  4. WEGOVY [Suspect]
     Active Substance: SEMAGLUTIDE
     Indication: Weight control
     Dosage: 0.5 MG
     Dates: start: 202505
  5. WEGOVY [Suspect]
     Active Substance: SEMAGLUTIDE
     Indication: Glucose tolerance impaired
  6. WEGOVY [Suspect]
     Active Substance: SEMAGLUTIDE
     Indication: Glycosylated haemoglobin increased
  7. WEGOVY [Suspect]
     Active Substance: SEMAGLUTIDE
     Indication: Weight control
     Dosage: 1 MG
     Dates: start: 202506
  8. WEGOVY [Suspect]
     Active Substance: SEMAGLUTIDE
     Indication: Glucose tolerance impaired
  9. WEGOVY [Suspect]
     Active Substance: SEMAGLUTIDE
     Indication: Glycosylated haemoglobin increased
  10. WEGOVY [Suspect]
     Active Substance: SEMAGLUTIDE
     Indication: Weight control
     Dosage: 1.7 MG
     Dates: start: 202508
  11. WEGOVY [Suspect]
     Active Substance: SEMAGLUTIDE
     Indication: Glucose tolerance impaired
  12. WEGOVY [Suspect]
     Active Substance: SEMAGLUTIDE
     Indication: Glycosylated haemoglobin increased
  13. WEGOVY [Suspect]
     Active Substance: SEMAGLUTIDE
     Indication: Weight control
     Dosage: 2.4 MG
     Route: 058
     Dates: start: 20250918
  14. WEGOVY [Suspect]
     Active Substance: SEMAGLUTIDE
     Indication: Glucose tolerance impaired
  15. WEGOVY [Suspect]
     Active Substance: SEMAGLUTIDE
     Indication: Glycosylated haemoglobin increased

REACTIONS (8)
  - Neuralgia [Not Recovered/Not Resolved]
  - Herpes zoster [Not Recovered/Not Resolved]
  - Post herpetic neuralgia [Not Recovered/Not Resolved]
  - Sedation [Recovered/Resolved]
  - Nausea [Recovering/Resolving]
  - Gastrointestinal pain [Recovered/Resolved]
  - Constipation [Recovered/Resolved]
  - Diarrhoea [Recovered/Resolved]

NARRATIVE: CASE EVENT DATE: 20250905
